FAERS Safety Report 15253844 (Version 4)
Quarter: 2020Q2

REPORT INFORMATION
  Report Type: Report from Study
  Country: US (occurrence: US)
  Receive Date: 20180808
  Receipt Date: 20200421
  Transmission Date: 20200713
  Serious: Yes (Hospitalization, Other)
  Sender: FDA-Public Use
  Company Number: US-ROCHE-2163870

PATIENT
  Sex: Male
  Weight: 181.6 kg

DRUGS (15)
  1. FISH OIL [Concomitant]
     Active Substance: FISH OIL
     Route: 048
     Dates: start: 2014
  2. CRANBERRY [VACCINIUM SPP.] [Concomitant]
     Indication: URINARY TRACT INFECTION
     Dosage: ONGOING : YES
     Route: 048
  3. CRANBERRY [VACCINIUM SPP.] [Concomitant]
     Route: 048
     Dates: start: 2018
  4. COQ 10 [Concomitant]
     Active Substance: UBIDECARENONE
     Dosage: ONGOING : YES
     Route: 048
  5. BACLOFEN. [Concomitant]
     Active Substance: BACLOFEN
     Indication: MUSCLE SPASMS
     Dosage: ONGOING : YES
     Route: 048
     Dates: start: 201701
  6. OCREVUS [Suspect]
     Active Substance: OCRELIZUMAB
     Indication: SECONDARY PROGRESSIVE MULTIPLE SCLEROSIS
     Dosage: ONGOING: NO
     Route: 042
     Dates: start: 201709
  7. OCREVUS [Suspect]
     Active Substance: OCRELIZUMAB
     Dosage: ONGOING : UNKNOWN
     Route: 042
     Dates: start: 2017
  8. LISINOPRIL. [Concomitant]
     Active Substance: LISINOPRIL
     Route: 048
     Dates: start: 2014
  9. VITAMIN C [Concomitant]
     Active Substance: ASCORBIC ACID
     Indication: URINARY TRACT INFECTION
     Route: 048
     Dates: start: 201906
  10. AMPYRA [Concomitant]
     Active Substance: DALFAMPRIDINE
     Route: 048
     Dates: start: 201101
  11. LISINOPRIL. [Concomitant]
     Active Substance: LISINOPRIL
     Indication: HYPERTENSION
     Dosage: ONGOING : YES
     Route: 048
     Dates: start: 201701
  12. TROSPIUM CHLORIDE. [Concomitant]
     Active Substance: TROSPIUM CHLORIDE
     Indication: URINARY INCONTINENCE
     Dosage: ONGOING : YES
     Route: 048
     Dates: start: 201109
  13. TROSPIUM CHLORIDE. [Concomitant]
     Active Substance: TROSPIUM CHLORIDE
     Indication: HYPERTONIC BLADDER
     Route: 048
  14. BACLOFEN. [Concomitant]
     Active Substance: BACLOFEN
     Route: 048
     Dates: start: 2018
  15. AMPYRA [Concomitant]
     Active Substance: DALFAMPRIDINE
     Route: 048
     Dates: start: 2012

REACTIONS (5)
  - Chromaturia [Recovered/Resolved]
  - Nephrolithiasis [Not Recovered/Not Resolved]
  - Sepsis [Recovered/Resolved]
  - Asthenia [Recovered/Resolved]
  - Urinary tract infection [Not Recovered/Not Resolved]

NARRATIVE: CASE EVENT DATE: 2017
